FAERS Safety Report 4527271-5 (Version None)
Quarter: 2004Q4

REPORT INFORMATION
  Report Type: 
  Country: None (occurrence: None)
  Receive Date: 20041214
  Receipt Date: 20041214
  Transmission Date: 20050328
  Serious: No
  Sender: FDA-Public Use
  Company Number: None

PATIENT

DRUGS (2)
  1. ALDACTONE [Suspect]
  2. LASIX [Suspect]

REACTIONS (2)
  - CARDIAC FAILURE CONGESTIVE [None]
  - HYPOKALAEMIA [None]
